FAERS Safety Report 19827733 (Version 8)
Quarter: 2025Q3

REPORT INFORMATION
  Report Type: Report from Study
  Country: CA (occurrence: CA)
  Receive Date: 20210914
  Receipt Date: 20250822
  Transmission Date: 20251021
  Serious: Yes (Hospitalization, Other)
  Sender: TAKEDA
  Company Number: CA-TAKEDA-2020TUS014627

PATIENT
  Age: 53 Year
  Sex: Female

DRUGS (22)
  1. VEDOLIZUMAB [Suspect]
     Active Substance: VEDOLIZUMAB
     Indication: Crohn^s disease
  2. VEDOLIZUMAB [Suspect]
     Active Substance: VEDOLIZUMAB
  3. VEDOLIZUMAB [Suspect]
     Active Substance: VEDOLIZUMAB
  4. VEDOLIZUMAB [Suspect]
     Active Substance: VEDOLIZUMAB
     Dosage: 300 MILLIGRAM, Q4WEEKS
     Dates: start: 20200916
  5. VEDOLIZUMAB [Suspect]
     Active Substance: VEDOLIZUMAB
     Dosage: 300 MILLIGRAM, Q4WEEKS
  6. VEDOLIZUMAB [Suspect]
     Active Substance: VEDOLIZUMAB
     Dosage: 300 MILLIGRAM, Q4WEEKS
  7. VEDOLIZUMAB [Suspect]
     Active Substance: VEDOLIZUMAB
     Dosage: 300 MILLIGRAM, Q4WEEKS
  8. VEDOLIZUMAB [Suspect]
     Active Substance: VEDOLIZUMAB
     Dosage: 300 MILLIGRAM, Q4WEEKS
  9. VEDOLIZUMAB [Suspect]
     Active Substance: VEDOLIZUMAB
     Dosage: 300 MILLIGRAM, Q4WEEKS
  10. VEDOLIZUMAB [Suspect]
     Active Substance: VEDOLIZUMAB
     Dosage: 300 MILLIGRAM, Q4WEEKS
  11. DEXILANT [Suspect]
     Active Substance: DEXLANSOPRAZOLE
     Indication: Product used for unknown indication
  12. PANTOPRAZOLE SODIUM [Suspect]
     Active Substance: PANTOPRAZOLE SODIUM
     Indication: Product used for unknown indication
  13. NORVASC [Concomitant]
     Active Substance: AMLODIPINE BESYLATE
  14. SYNTHROID [Concomitant]
     Active Substance: LEVOTHYROXINE SODIUM
  15. SYNTHROID [Concomitant]
     Active Substance: LEVOTHYROXINE SODIUM
  16. ALTACE [Concomitant]
     Active Substance: RAMIPRIL
  17. LYRICA [Concomitant]
     Active Substance: PREGABALIN
  18. ENTOCORT [Concomitant]
     Active Substance: BUDESONIDE
  19. RAMIPRIL [Concomitant]
     Active Substance: RAMIPRIL
  20. FUROSEMIDE [Concomitant]
     Active Substance: FUROSEMIDE
  21. FAMOTIDINE [Concomitant]
     Active Substance: FAMOTIDINE
  22. SPIRONOLACTONE [Concomitant]
     Active Substance: SPIRONOLACTONE

REACTIONS (4)
  - Crohn^s disease [Unknown]
  - Abdominal pain [Recovered/Resolved]
  - Blood pressure increased [Not Recovered/Not Resolved]
  - Off label use [Unknown]

NARRATIVE: CASE EVENT DATE: 20200916
